FAERS Safety Report 13158267 (Version 2)
Quarter: 2017Q1

REPORT INFORMATION
  Report Type: Spontaneous
  Country: JP (occurrence: JP)
  Receive Date: 20170127
  Receipt Date: 20170316
  Transmission Date: 20170428
  Serious: Yes (Hospitalization, Other)
  Sender: FDA-Public Use
  Company Number: JP-009507513-A201608041

PATIENT
  Age: 8 Year
  Sex: Male
  Weight: 17 kg

DRUGS (26)
  1. METHOTREXATE. [Suspect]
     Active Substance: METHOTREXATE
     Dosage: 12.5 MG, UNK
     Route: 028
     Dates: start: 20151022, end: 20151022
  2. GRANISETRON [Concomitant]
     Active Substance: GRANISETRON
     Dosage: 1.4 MG, UNK
     Route: 051
     Dates: start: 20151005, end: 20151010
  3. PREDONINE [Concomitant]
     Active Substance: PREDNISOLONE
     Indication: ACUTE LYMPHOCYTIC LEUKAEMIA
     Dosage: 45 MG, UNK
     Route: 051
     Dates: start: 20150831, end: 20150913
  4. CANCIDAS [Suspect]
     Active Substance: CASPOFUNGIN ACETATE
     Indication: FEBRILE NEUTROPENIA
     Dosage: 50 MG, QD
     Route: 041
     Dates: start: 20150814, end: 20150814
  5. MICAFUNGIN SODIUM [Concomitant]
     Active Substance: MICAFUNGIN SODIUM
     Indication: FEBRILE NEUTROPENIA
     Dosage: 50 MG, UNK
     Route: 041
     Dates: start: 20150801, end: 20150813
  6. MANNITOL. [Concomitant]
     Active Substance: MANNITOL
     Dosage: 300 ML, UNK
     Route: 051
     Dates: end: 20150817
  7. MIDAZOLAM [Concomitant]
     Active Substance: MIDAZOLAM HYDROCHLORIDE
     Indication: RESPIRATORY THERAPY
     Dosage: 3.75 MG, UNK
     Route: 051
     Dates: end: 20150915
  8. LEUKERIN [Concomitant]
     Active Substance: MERCAPTOPURINE
     Indication: ACUTE LYMPHOCYTIC LEUKAEMIA
     Dosage: 38 MG, UNK
     Route: 048
     Dates: start: 20150929
  9. ONON [Concomitant]
     Active Substance: PRANLUKAST
     Dosage: 120 MG, UNK
     Route: 048
     Dates: start: 20150930
  10. CEFPIROME SULFATE [Suspect]
     Active Substance: CEFPIROME SULFATE
     Indication: SEPSIS
     Dosage: 1500 MG
     Route: 051
     Dates: start: 20150818, end: 20150827
  11. AMPHOTERICIN B. [Concomitant]
     Active Substance: AMPHOTERICIN B
     Indication: FEBRILE NEUTROPENIA
     Dosage: 90 MG, UNK
     Route: 041
     Dates: start: 20150810, end: 20150813
  12. MEROPENEM. [Concomitant]
     Active Substance: MEROPENEM
     Indication: SEPSIS
     Dosage: 1500 MG, UNK
     Route: 051
     Dates: end: 20150817
  13. METHOTREXATE. [Suspect]
     Active Substance: METHOTREXATE
     Indication: ACUTE LYMPHOCYTIC LEUKAEMIA
     Dosage: 12.5 MG, UNK
     Route: 028
     Dates: start: 20150928, end: 20150928
  14. SOLU-CORTEF [Concomitant]
     Active Substance: HYDROCORTISONE SODIUM SUCCINATE
     Indication: ACUTE LYMPHOCYTIC LEUKAEMIA
     Dosage: 25 MG, UNK
     Route: 028
     Dates: start: 20150928, end: 20150928
  15. BACTRAMIN [Concomitant]
     Active Substance: SULFAMETHOXAZOLE\TRIMETHOPRIM
     Indication: PROPHYLAXIS
     Dosage: 80 MG, UNK
     Route: 048
  16. ONON [Concomitant]
     Active Substance: PRANLUKAST
     Dosage: 120 MG, UNK
     Route: 048
  17. CYLOCIDE [Suspect]
     Active Substance: CYTARABINE
     Indication: ACUTE LYMPHOCYTIC LEUKAEMIA
     Dosage: 48 MG, UNK
     Route: 051
     Dates: start: 20150928, end: 20151002
  18. CYLOCIDE [Suspect]
     Active Substance: CYTARABINE
     Dosage: 48 MG, UNK
     Route: 051
     Dates: start: 20151005, end: 20151009
  19. GRAN [Concomitant]
     Active Substance: FILGRASTIM
     Indication: PROPHYLAXIS
     Dosage: 150 MICROGRAM, UNK
     Route: 051
     Dates: end: 20150818
  20. CANCIDAS [Suspect]
     Active Substance: CASPOFUNGIN ACETATE
     Dosage: 25 MG, QD
     Route: 041
     Dates: start: 20150815, end: 20151019
  21. ENDOXAN [Suspect]
     Active Substance: CYCLOPHOSPHAMIDE
     Indication: ACUTE LYMPHOCYTIC LEUKAEMIA
     Dosage: 640 MG, UNK
     Route: 051
     Dates: start: 20150928, end: 20150928
  22. VANCOMYCIN [Concomitant]
     Active Substance: VANCOMYCIN
     Dosage: 360-720 MG/DAY (DEPENDING ON THE BLOOD CONCENTRATION LEVEL)
     Route: 051
     Dates: end: 20150814
  23. GRANISETRON [Concomitant]
     Active Substance: GRANISETRON
     Indication: PROPHYLAXIS
     Dosage: 1.4 MG, UNK
     Route: 051
     Dates: start: 20150928, end: 20151003
  24. PREDONINE [Concomitant]
     Active Substance: PREDNISOLONE
     Dosage: DAILY DOSAGE UNKNOWN, TAPERED
     Route: 051
     Dates: start: 20150914, end: 20150926
  25. CYLOCIDE [Suspect]
     Active Substance: CYTARABINE
     Dosage: 48 MG, UNK
     Route: 051
     Dates: start: 20151022, end: 20151026
  26. DEPAKENE [Concomitant]
     Active Substance: VALPROIC ACID
     Dosage: 430 MG, UNK
     Route: 048

REACTIONS (6)
  - Bone marrow failure [Recovered/Resolved]
  - Neutrophil count decreased [Recovered/Resolved]
  - White blood cell count decreased [Recovered/Resolved]
  - Asthma [Recovered/Resolved]
  - Gamma-glutamyltransferase increased [Recovered/Resolved]
  - Alanine aminotransferase increased [Recovered/Resolved]

NARRATIVE: CASE EVENT DATE: 20150819
